FAERS Safety Report 10246328 (Version 1)
Quarter: 2014Q2

REPORT INFORMATION
  Report Type: Spontaneous
  Country: US (occurrence: None)
  Receive Date: 20140617
  Receipt Date: 20140617
  Transmission Date: 20141212
  Serious: Yes (Other)
  Sender: FDA-Public Use
  Company Number: None

PATIENT
  Age: 65 Year
  Sex: Female

DRUGS (1)
  1. CLARITHROMYCIN [Suspect]
     Indication: GASTROINTESTINAL BACTERIAL INFECTION
     Dosage: 1   TWICE DAILY  TAKEN BY MOUTH
     Route: 048
     Dates: start: 20140609

REACTIONS (2)
  - Urticaria [None]
  - Rash [None]
